FAERS Safety Report 8432391-9 (Version None)
Quarter: 2012Q2

REPORT INFORMATION
  Report Type: 
  Country: None (occurrence: None)
  Receive Date: 20120608
  Receipt Date: 20120605
  Transmission Date: 20120825
  Serious: No
  Sender: FDA-Public Use
  Company Number: ADR-2012-00549

PATIENT
  Sex: Male

DRUGS (2)
  1. LIORESAL [Suspect]
     Indication: MUSCLE SPASTICITY
     Dosage: 311.4 MCG/DAY
  2. LIORESAL [Suspect]
     Indication: BRAIN INJURY
     Dosage: 311.4 MCG/DAY

REACTIONS (4)
  - IMPLANT SITE DISCHARGE [None]
  - IMPLANT SITE INFECTION [None]
  - IMPLANT SITE EROSION [None]
  - INCISION SITE COMPLICATION [None]
